FAERS Safety Report 25152133 (Version 1)
Quarter: 2025Q2

REPORT INFORMATION
  Report Type: Report from Study
  Country: GB (occurrence: GB)
  Receive Date: 20250402
  Receipt Date: 20250402
  Transmission Date: 20250716
  Serious: Yes (Death, Hospitalization)
  Sender: JOHNSON AND JOHNSON
  Company Number: GB-JNJFOC-20250336606

PATIENT
  Age: 87 Year
  Sex: Male
  Weight: 65 kg

DRUGS (31)
  1. TREMFYA [Suspect]
     Active Substance: GUSELKUMAB
     Indication: Psoriasis
     Route: 065
     Dates: start: 20210107, end: 20220714
  2. TREMFYA [Suspect]
     Active Substance: GUSELKUMAB
  3. TREMFYA [Suspect]
     Active Substance: GUSELKUMAB
  4. TREMFYA [Suspect]
     Active Substance: GUSELKUMAB
  5. ALLOPURINOL [Concomitant]
     Active Substance: ALLOPURINOL
     Dates: start: 20020122, end: 20250217
  6. PREDNISOLONE [Concomitant]
     Active Substance: PREDNISOLONE
     Dates: start: 20060623, end: 20250217
  7. FINASTERIDE [Concomitant]
     Active Substance: FINASTERIDE
     Dates: start: 20070518, end: 20250217
  8. CITALOPRAM [Concomitant]
     Active Substance: CITALOPRAM
     Dates: start: 20100923, end: 20250217
  9. DERMOL [CLOBETASOL PROPIONATE] [Concomitant]
     Dates: start: 20101007, end: 20250217
  10. HYPROMELLOSES [Concomitant]
     Active Substance: HYPROMELLOSES
     Dates: start: 20120210, end: 20250217
  11. BALNEUM [GLYCINE MAX SEED OIL] [Concomitant]
     Dates: start: 20170329, end: 20250217
  12. CLOPIDOGREL [Concomitant]
     Active Substance: CLOPIDOGREL BISULFATE
     Dates: start: 20180130, end: 20250217
  13. IRBESARTAN [Concomitant]
     Active Substance: IRBESARTAN
     Dates: start: 20180614, end: 20250217
  14. HYDROXYZINE [Concomitant]
     Active Substance: HYDROXYZINE HYDROCHLORIDE
     Dates: start: 20190311, end: 20250217
  15. FOLIC ACID [Concomitant]
     Active Substance: FOLIC ACID
     Dates: start: 20190312, end: 20250217
  16. GLICLAZIDE [Concomitant]
     Active Substance: GLICLAZIDE
     Dates: start: 20190331, end: 20250217
  17. LINAGLIPTIN [Concomitant]
     Active Substance: LINAGLIPTIN
     Dates: start: 20190331, end: 20250217
  18. DONEPEZIL HYDROCHLORIDE [Concomitant]
     Active Substance: DONEPEZIL HYDROCHLORIDE
     Dates: start: 20201001, end: 20250217
  19. DONEPEZIL HYDROCHLORIDE [Concomitant]
     Active Substance: DONEPEZIL HYDROCHLORIDE
  20. ENSTILAR [BETAMETHASONE DIPROPIONATE;CALCIPOTRIOL] [Concomitant]
     Dates: start: 20201210, end: 20250217
  21. ISOPROPYL MYRISTATE\MINERAL OIL [Concomitant]
     Active Substance: ISOPROPYL MYRISTATE\MINERAL OIL
     Dates: start: 20201221, end: 20250217
  22. ATORVASTATIN [Concomitant]
     Active Substance: ATORVASTATIN
     Dates: start: 20201221, end: 20250217
  23. ATORVASTATIN [Concomitant]
     Active Substance: ATORVASTATIN
     Dates: start: 20240101, end: 20250217
  24. BUPRENORPHINE HYDROCHLORIDE [Concomitant]
     Active Substance: BUPRENORPHINE HYDROCHLORIDE
     Dates: start: 20240325, end: 20250217
  25. COVID-19 VACCINE [Concomitant]
     Dates: start: 20240512, end: 20240512
  26. FEXOFENADINE [Concomitant]
     Active Substance: FEXOFENADINE HYDROCHLORIDE
     Dates: start: 20240529, end: 20250217
  27. LACTULOSE [Concomitant]
     Active Substance: LACTULOSE
     Dates: start: 20240620, end: 20250217
  28. DOXYCYCLINE [Concomitant]
     Active Substance: DOXYCYCLINE
     Dates: start: 20240709, end: 20240713
  29. AMOXICILLIN [Concomitant]
     Active Substance: AMOXICILLIN
     Dates: start: 20240904, end: 20240909
  30. DOCUSATE SODIUM [DOCUSATE SODIUM;SENNOSIDE A+B] [Concomitant]
     Dates: start: 20241003, end: 20250217
  31. FUROSEMIDE [Concomitant]
     Active Substance: FUROSEMIDE
     Dates: start: 20241112, end: 20250217

REACTIONS (8)
  - Spontaneous bacterial peritonitis [Fatal]
  - Klebsiella infection [Fatal]
  - Hepatic cirrhosis [Fatal]
  - Chronic hepatic failure [Fatal]
  - Renal failure [Fatal]
  - Vascular dementia [Fatal]
  - COVID-19 [Fatal]
  - Haemochromatosis [Fatal]

NARRATIVE: CASE EVENT DATE: 20241118
